FAERS Safety Report 7894449-2 (Version None)
Quarter: 2011Q4

REPORT INFORMATION
  Report Type: 
  Country: None (occurrence: None)
  Receive Date: 20111105
  Receipt Date: 20111031
  Transmission Date: 20120403
  Serious: Yes (Death, Other)
  Sender: FDA-Public Use
  Company Number: GB-ASTRAZENECA-2011SE65595

PATIENT
  Sex: Male

DRUGS (3)
  1. MEROPENEM [Suspect]
     Route: 042
  2. TIGECYCLINE [Concomitant]
  3. PIPERACILLIN AND TAZOBACTAM [Concomitant]

REACTIONS (3)
  - MALAISE [None]
  - DRUG INEFFECTIVE [None]
  - DEATH [None]
